FAERS Safety Report 9286325 (Version 1)
Quarter: 2013Q2

REPORT INFORMATION
  Report Type: Spontaneous
  Country: US (occurrence: None)
  Receive Date: 20130510
  Receipt Date: 20130510
  Transmission Date: 20140414
  Serious: Yes (Hospitalization)
  Sender: FDA-Public Use
  Company Number: None

PATIENT
  Age: 85 Year
  Sex: Male
  Weight: 75 kg

DRUGS (14)
  1. COUMADIN [Suspect]
     Indication: VASCULAR OCCLUSION
     Dosage: QPM,  CHRONIC
     Route: 048
  2. PLAVIX [Suspect]
     Indication: CORONARY ARTERY DISEASE
     Dosage: CHRONIC
     Route: 048
  3. FLOMAX [Concomitant]
  4. ZOCOR [Concomitant]
  5. PROTONIX [Concomitant]
  6. LISINOPRIL [Concomitant]
  7. SYNTHROID [Concomitant]
  8. LASIX [Concomitant]
  9. PROSCAR [Concomitant]
  10. ALLOPURINOL [Concomitant]
  11. SENNA [Concomitant]
  12. METOPROLOL [Concomitant]
  13. VITAMIN B12 [Concomitant]
  14. VIT C [Concomitant]

REACTIONS (4)
  - Upper gastrointestinal haemorrhage [None]
  - Mental status changes [None]
  - Anaemia [None]
  - International normalised ratio increased [None]
